FAERS Safety Report 4730399-8 (Version None)
Quarter: 2005Q3

REPORT INFORMATION
  Report Type: 
  Country: None (occurrence: None)
  Receive Date: 20050725
  Receipt Date: 20050413
  Transmission Date: 20060218
  Serious: No
  Sender: FDA-Public Use
  Company Number: USA050495564

PATIENT
  Age: 48 Year
  Sex: Male

DRUGS (4)
  1. STRATTERA [Suspect]
     Indication: ATTENTION DEFICIT/HYPERACTIVITY DISORDER
     Dosage: 40 MG IN THE EVENING
  2. XANAX (ALPRAZOLAM DUM) [Concomitant]
  3. AMBIEN [Concomitant]
  4. REMERON (MIRTAZAPINE ORIFARM) [Concomitant]

REACTIONS (3)
  - CHANGE OF BOWEL HABIT [None]
  - DYSURIA [None]
  - INSOMNIA [None]
